FAERS Safety Report 9493983 (Version 3)
Quarter: 2013Q3

REPORT INFORMATION
  Report Type: Spontaneous
  Country: IL (occurrence: IL)
  Receive Date: 20130903
  Receipt Date: 20130913
  Transmission Date: 20140515
  Serious: Yes (Hospitalization, Other)
  Sender: FDA-Public Use
  Company Number: IL-009507513-1308ISR007005

PATIENT
  Age: 60 Year
  Sex: Male
  Weight: 79 kg

DRUGS (5)
  1. VICTRELIS [Suspect]
     Dosage: UNKNOWN
     Route: 048
  2. COPEGUS [Suspect]
     Dosage: UNKNOWN
  3. PEGASYS [Suspect]
     Dosage: UNKNOWN
  4. INSULIN [Concomitant]
     Dosage: UNKNOWN
  5. METHADONE HYDROCHLORIDE [Concomitant]
     Dosage: UNKNOWN

REACTIONS (7)
  - Anaemia [Not Recovered/Not Resolved]
  - Transfusion [Unknown]
  - Pain in extremity [Not Recovered/Not Resolved]
  - Sensation of heaviness [Not Recovered/Not Resolved]
  - Abasia [Not Recovered/Not Resolved]
  - Memory impairment [Unknown]
  - Memory impairment [Unknown]
